FAERS Safety Report 9233498 (Version 2)
Quarter: 2013Q2

REPORT INFORMATION
  Report Type: Spontaneous
  Country: US (occurrence: None)
  Receive Date: 20130412
  Receipt Date: 20130626
  Transmission Date: 20140414
  Serious: Yes (Hospitalization)
  Sender: FDA-Public Use
  Company Number: 13-F-US-00097

PATIENT
  Age: 54 Year
  Sex: Male
  Weight: 106.2 kg

DRUGS (17)
  1. FOLOTYN [Suspect]
     Indication: PERIPHERAL T-CELL LYMPHOMA UNSPECIFIED
     Route: 042
  2. CYCLOPHOSPHAMIDE (CYCLOPHOSPHAMIDE) [Suspect]
     Indication: PERIPHERAL T-CELL LYMPHOMA UNSPECIFIED
  3. ETOPOSIDE (ETOPOSIDE) [Suspect]
     Indication: PERIPHERAL T-CELL LYMPHOMA UNSPECIFIED
  4. PREDNISOLONE (PREDNISOLONE) [Suspect]
  5. DUREZOL [Concomitant]
  6. ACETAMINOPHEN [Concomitant]
  7. COLACE [Concomitant]
  8. METAMUCIL [Concomitant]
  9. NEXIUM [Concomitant]
  10. ZOFRAN [Concomitant]
  11. ACYCLOVIR [Concomitant]
  12. ALLOPURINOL [Concomitant]
  13. FLUCONAZOLE [Concomitant]
  14. LORAZEPAM [Concomitant]
  15. LYSINE [Concomitant]
  16. PROCHLORPERAZINE [Concomitant]
  17. ZOLPIDEM [Concomitant]

REACTIONS (2)
  - Sepsis [None]
  - General physical health deterioration [None]
